FAERS Safety Report 9210336 (Version 2)
Quarter: 2013Q2

REPORT INFORMATION
  Report Type: Spontaneous
  Country: AU (occurrence: AU)
  Receive Date: 20130404
  Receipt Date: 20130410
  Transmission Date: 20140414
  Serious: Yes (Death)
  Sender: FDA-Public Use
  Company Number: AU-ROCHE-1209688

PATIENT
  Sex: Male

DRUGS (1)
  1. RIVOTRIL [Suspect]
     Indication: PRODUCT USED FOR UNKNOWN INDICATION
     Dosage: RIVOTRIL DROP SOLUTION 0.25%
     Route: 048

REACTIONS (3)
  - Death [Fatal]
  - Tooth discolouration [Unknown]
  - Oral mucosal discolouration [Unknown]
